FAERS Safety Report 18127639 (Version 1)
Quarter: 2020Q3

REPORT INFORMATION
  Report Type: Spontaneous
  Country: AU (occurrence: AU)
  Receive Date: 20200810
  Receipt Date: 20200810
  Transmission Date: 20201103
  Serious: Yes (Hospitalization, Other)
  Sender: FDA-Public Use
  Company Number: AU-ROCHE-2590780

PATIENT
  Age: 35 Year
  Sex: Female
  Weight: 52 kg

DRUGS (7)
  1. COBIMETINIB. [Suspect]
     Active Substance: COBIMETINIB
     Indication: PRODUCT USED FOR UNKNOWN INDICATION
     Route: 065
     Dates: start: 20180903, end: 20180912
  2. ENCORAFENIB [Suspect]
     Active Substance: ENCORAFENIB
     Indication: PRODUCT USED FOR UNKNOWN INDICATION
     Dosage: 75 MG 6 CAPSULES DAILY
     Route: 065
     Dates: start: 20181002
  3. BINIMETINIB [Suspect]
     Active Substance: BINIMETINIB
     Indication: PRODUCT USED FOR UNKNOWN INDICATION
     Dosage: 3 TABLETS TWICE DAILY
     Route: 065
     Dates: start: 20181002
  4. DABRAFENIB [Suspect]
     Active Substance: DABRAFENIB
     Indication: PRODUCT USED FOR UNKNOWN INDICATION
     Route: 065
  5. NIVOLUMAB [Suspect]
     Active Substance: NIVOLUMAB
     Indication: MALIGNANT MELANOMA
     Route: 042
  6. TRAMETINIB [Concomitant]
     Active Substance: TRAMETINIB
  7. VEMURAFENIB. [Suspect]
     Active Substance: VEMURAFENIB
     Indication: PRODUCT USED FOR UNKNOWN INDICATION
     Route: 065
     Dates: start: 20180903, end: 20180912

REACTIONS (20)
  - Dizziness [Recovered/Resolved]
  - Musculoskeletal pain [Unknown]
  - Pain in extremity [Unknown]
  - Skin exfoliation [Unknown]
  - Nasopharyngitis [Recovering/Resolving]
  - Oropharyngeal pain [Unknown]
  - Menorrhagia [Recovering/Resolving]
  - Erythema [Recovering/Resolving]
  - Erythema [Unknown]
  - Pallor [Unknown]
  - Rash [Recovering/Resolving]
  - Swelling face [Unknown]
  - Oropharyngeal pain [Unknown]
  - Cough [Unknown]
  - Mouth ulceration [Unknown]
  - Vomiting [Unknown]
  - Nausea [Recovered/Resolved]
  - Pruritus [Not Recovered/Not Resolved]
  - Diarrhoea [Recovered/Resolved]
  - Weight decreased [Unknown]

NARRATIVE: CASE EVENT DATE: 20180911
